FAERS Safety Report 22099279 (Version 1)
Quarter: 2023Q1

REPORT INFORMATION
  Report Type: Report from Study
  Country: TW (occurrence: TW)
  Receive Date: 20230315
  Receipt Date: 20230315
  Transmission Date: 20230418
  Serious: Yes (Hospitalization)
  Sender: FDA-Public Use
  Company Number: TW-ELI_LILLY_AND_COMPANY-TW202204000312

PATIENT
  Age: 62 Year
  Sex: Female
  Weight: 54 kg

DRUGS (9)
  1. IMLUNESTRANT [Suspect]
     Active Substance: IMLUNESTRANT
     Indication: Breast cancer
     Dosage: 400 MG, DAILY
     Route: 048
     Dates: start: 20210909, end: 20220323
  2. ABEMACICLIB [Suspect]
     Active Substance: ABEMACICLIB
     Indication: Breast cancer
     Dosage: 150 MG, BID
     Route: 048
     Dates: start: 20210909, end: 20220323
  3. ANASTROZOLE [Suspect]
     Active Substance: ANASTROZOLE
     Indication: Breast cancer
     Dosage: 1 MG, DAILY
     Route: 048
     Dates: start: 20210909, end: 20220323
  4. DENOSUMAB [Concomitant]
     Active Substance: DENOSUMAB
     Indication: Breast cancer
     Dosage: UNK, UNKNOWN
     Route: 065
     Dates: start: 20210819
  5. DIETARY SUPPLEMENT\HERBALS\MILK THISTLE [Concomitant]
     Active Substance: DIETARY SUPPLEMENT\HERBALS\MILK THISTLE
     Indication: Breast cancer
     Dosage: UNK, UNKNOWN
     Route: 065
     Dates: start: 20210923
  6. LOPERAMIDE [Concomitant]
     Active Substance: LOPERAMIDE
     Indication: Prophylaxis
     Dosage: UNK, UNKNOWN
     Route: 065
     Dates: start: 20210909
  7. IRON [Concomitant]
     Active Substance: IRON
     Indication: Prophylaxis
     Dosage: UNK, UNKNOWN
     Route: 065
     Dates: start: 20211212, end: 20220331
  8. ALPRAZOLAM [Concomitant]
     Active Substance: ALPRAZOLAM
     Indication: Insomnia
     Dosage: UNK, UNKNOWN
     Route: 065
     Dates: start: 20220331
  9. PROCHLORPERAZINE [Concomitant]
     Active Substance: PROCHLORPERAZINE
     Indication: Vomiting
     Dosage: UNK, UNKNOWN
     Route: 065
     Dates: start: 20210916

REACTIONS (2)
  - Hyponatraemia [Recovered/Resolved]
  - Thrombocytopenia [Not Recovered/Not Resolved]

NARRATIVE: CASE EVENT DATE: 20220331
